FAERS Safety Report 7607040-X (Version None)
Quarter: 2011Q3

REPORT INFORMATION
  Report Type: 
  Country: None (occurrence: None)
  Receive Date: 20110713
  Receipt Date: 20110704
  Transmission Date: 20111222
  Serious: Yes (Hospitalization)
  Sender: FDA-Public Use
  Company Number: CA-JNJFOC-20110702139

PATIENT
  Sex: Male
  Weight: 80 kg

DRUGS (4)
  1. BENADRYL [Concomitant]
     Indication: PREMEDICATION
  2. REMICADE [Suspect]
     Indication: CROHN'S DISEASE
     Route: 042
     Dates: start: 20080215
  3. HYDROCORTISONE [Concomitant]
     Indication: PREMEDICATION
  4. TYLENOL-500 [Concomitant]
     Indication: PREMEDICATION

REACTIONS (2)
  - BLOOD POTASSIUM DECREASED [None]
  - CROHN'S DISEASE [None]
